FAERS Safety Report 25680914 (Version 1)
Quarter: 2025Q3

REPORT INFORMATION
  Report Type: Spontaneous
  Country: GB (occurrence: GB)
  Receive Date: 20250814
  Receipt Date: 20250814
  Transmission Date: 20251020
  Serious: Yes (Life-Threatening)
  Sender: SAMSUNG BIOEPIS
  Company Number: None

PATIENT
  Age: 58 Year
  Sex: Female

DRUGS (1)
  1. INFLIXIMAB [Suspect]
     Active Substance: INFLIXIMAB
     Indication: Product used for unknown indication
     Dates: start: 20250806, end: 20250806

REACTIONS (1)
  - Flushing [Recovered/Resolved]

NARRATIVE: CASE EVENT DATE: 20250806
